FAERS Safety Report 6177682-X (Version None)
Quarter: 2009Q2

REPORT INFORMATION
  Report Type: 
  Country: None (occurrence: None)
  Receive Date: 20090504
  Receipt Date: 20090422
  Transmission Date: 20091009
  Serious: Yes (Other)
  Sender: FDA-Public Use
  Company Number: PHEH2009US04061

PATIENT
  Sex: Female

DRUGS (4)
  1. DIOVAN [Suspect]
     Dosage: UNK
     Dates: start: 20070101
  2. EXFORGE [Suspect]
     Dosage: 10/320MG
     Dates: start: 20090201
  3. METOPROLOL TARTRATE [Suspect]
     Dosage: 100 MG, QD
  4. CLONIDINE [Suspect]
     Dosage: 0.2 MG, UNK
     Dates: start: 20090201

REACTIONS (7)
  - CHEST PAIN [None]
  - COUGH [None]
  - EYE SWELLING [None]
  - JOINT SWELLING [None]
  - OEDEMA PERIPHERAL [None]
  - PRURITUS [None]
  - WEIGHT INCREASED [None]
